FAERS Safety Report 24751684 (Version 2)
Quarter: 2025Q1

REPORT INFORMATION
  Report Type: Report from Study
  Country: US (occurrence: US)
  Receive Date: 20241219
  Receipt Date: 20250303
  Transmission Date: 20250408
  Serious: Yes (Other)
  Sender: CSL BEHRING
  Company Number: US-BEH-2024187742

PATIENT
  Age: 74 Year
  Sex: Male
  Weight: 72.562 kg

DRUGS (2)
  1. HIZENTRA [Suspect]
     Active Substance: HUMAN IMMUNOGLOBULIN G
     Indication: Product used for unknown indication
     Route: 065
  2. HIZENTRA [Suspect]
     Active Substance: HUMAN IMMUNOGLOBULIN G
     Dosage: 20 G, QW
     Route: 065

REACTIONS (4)
  - Tendon rupture [Unknown]
  - Infusion site discharge [Unknown]
  - Infusion site swelling [Unknown]
  - Micturition urgency [Unknown]
